FAERS Safety Report 5472893-0 (Version None)
Quarter: 2007Q4

REPORT INFORMATION
  Report Type: 
  Country: None (occurrence: None)
  Receive Date: 20071001
  Receipt Date: 20070925
  Transmission Date: 20080405
  Serious: Yes (Death)
  Sender: FDA-Public Use
  Company Number: A0685071A

PATIENT
  Age: 97 Year
  Sex: Female

DRUGS (3)
  1. COREG [Suspect]
  2. PERCOCET [Suspect]
  3. FLEXERIL [Suspect]

REACTIONS (6)
  - CHOKING [None]
  - DYSPNOEA [None]
  - LOSS OF CONSCIOUSNESS [None]
  - MOBILITY DECREASED [None]
  - PULSE ABSENT [None]
  - RETCHING [None]
